FAERS Safety Report 21161974 (Version 1)
Quarter: 2022Q3

REPORT INFORMATION
  Report Type: Spontaneous
  Country: CA (occurrence: CA)
  Receive Date: 20220802
  Receipt Date: 20220802
  Transmission Date: 20221027
  Serious: Yes (Other)
  Sender: FDA-Public Use
  Company Number: None

PATIENT
  Age: 25 Year
  Sex: Male

DRUGS (5)
  1. METHOTREXATE [Suspect]
     Active Substance: METHOTREXATE
     Indication: Product used for unknown indication
     Dosage: 1 EVERY 1 WEEKS
     Route: 048
  2. CALCIUM [Concomitant]
     Active Substance: CALCIUM
  3. FOLIC ACID [Concomitant]
     Active Substance: FOLIC ACID
  4. PENTASA [Concomitant]
     Active Substance: MESALAMINE
  5. STELARA [Concomitant]
     Active Substance: USTEKINUMAB

REACTIONS (5)
  - Condition aggravated [Not Recovered/Not Resolved]
  - Diarrhoea haemorrhagic [Not Recovered/Not Resolved]
  - Haematochezia [Not Recovered/Not Resolved]
  - Muscle spasms [Not Recovered/Not Resolved]
  - Rectal haemorrhage [Not Recovered/Not Resolved]
